FAERS Safety Report 7801962-2 (Version None)
Quarter: 2011Q4

REPORT INFORMATION
  Report Type: 
  Country: None (occurrence: None)
  Receive Date: 20111007
  Receipt Date: 20111007
  Transmission Date: 20120403
  Serious: Yes (Disabling, Other)
  Sender: FDA-Public Use
  Company Number: None

PATIENT
  Sex: Female
  Weight: 79.378 kg

DRUGS (1)
  1. LAMICTAL [Suspect]
     Indication: DEATH OF RELATIVE
     Dosage: 1 TABLET
     Route: 048
     Dates: start: 20110707, end: 20110717

REACTIONS (7)
  - PHARYNGEAL OEDEMA [None]
  - PRODUCTIVE COUGH [None]
  - DYSPHONIA [None]
  - RASH [None]
  - DYSPNOEA [None]
  - FEAR [None]
  - PRURITUS [None]
